FAERS Safety Report 4874108-0 (Version None)
Quarter: 2005Q4

REPORT INFORMATION
  Report Type: 
  Country: None (occurrence: None)
  Receive Date: 20051201
  Receipt Date: 20050808
  Transmission Date: 20060501
  Serious: No
  Sender: FDA-Public Use
  Company Number: 2005PV000920

PATIENT
  Age: 62 Year
  Sex: Male

DRUGS (17)
  1. BYETTA [Suspect]
     Indication: DIABETES MELLITUS NON-INSULIN-DEPENDENT
     Dosage: 5 MCG; BID; SC
     Route: 058
     Dates: start: 20050805
  2. METFORMIN [Concomitant]
  3. GLIPIZIDE [Concomitant]
  4. ACTOS [Concomitant]
  5. PRANDIN [Concomitant]
  6. LIPITOR [Concomitant]
  7. POTASSIUM CHLORIDE [Concomitant]
  8. AVAPRO [Concomitant]
  9. ALDACTONE [Concomitant]
  10. LASIX [Concomitant]
  11. PLAVIX [Concomitant]
  12. LOPRESSOR [Concomitant]
  13. CELEXA [Concomitant]
  14. AMIODARONE HCL [Concomitant]
  15. NEXIUM [Concomitant]
  16. NITROGLYCERIN [Concomitant]
  17. GLUCOPHAGE [Concomitant]

REACTIONS (9)
  - BLOOD GLUCOSE DECREASED [None]
  - BLOOD GLUCOSE INCREASED [None]
  - DIZZINESS [None]
  - DRUG INEFFECTIVE [None]
  - HEADACHE [None]
  - MUSCULOSKELETAL CHEST PAIN [None]
  - NAUSEA [None]
  - NECK PAIN [None]
  - TREMOR [None]
